FAERS Safety Report 25817272 (Version 1)
Quarter: 2025Q3

REPORT INFORMATION
  Report Type: Spontaneous
  Country: EU (occurrence: EU)
  Receive Date: 20250918
  Receipt Date: 20250918
  Transmission Date: 20251020
  Serious: Yes (Other)
  Sender: INSUD PHARMA
  Company Number: None

PATIENT
  Age: 34 Year
  Sex: Female
  Weight: 54 kg

DRUGS (1)
  1. ETHINYL ESTRADIOL\LEVONORGESTREL [Suspect]
     Active Substance: ETHINYL ESTRADIOL\LEVONORGESTREL
     Indication: Menstrual cycle management
     Dosage: 1 DOSAGE FORM, QD, 1X PER DAG 1 STUK
     Route: 048
     Dates: start: 20250301, end: 20250705

REACTIONS (1)
  - Hyperprolactinaemia [Recovered/Resolved]
